FAERS Safety Report 4888787-5 (Version None)
Quarter: 2005Q4

REPORT INFORMATION
  Report Type: 
  Country: None (occurrence: None)
  Receive Date: 20051216
  Receipt Date: 20050913
  Transmission Date: 20060501
  Serious: No
  Sender: FDA-Public Use
  Company Number: USA0509107984

PATIENT
  Age: 85 Year
  Sex: Male

DRUGS (1)
  1. CIALIS [Suspect]
     Indication: ERECTILE DYSFUNCTION
     Dosage: 20 MG/1 AS NEEDED
     Dates: start: 20050912, end: 20050913

REACTIONS (1)
  - SPONTANEOUS PENILE ERECTION [None]
